FAERS Safety Report 9595710 (Version 2)
Quarter: 2013Q4

REPORT INFORMATION
  Report Type: Spontaneous
  Country: US (occurrence: US)
  Receive Date: 20131004
  Receipt Date: 20131004
  Transmission Date: 20140711
  Serious: Yes (Other)
  Sender: FDA-Public Use
  Company Number: US-SANOFI-AVENTIS-CERZ-1003161

PATIENT
  Age: 5 Year
  Sex: Female
  Weight: 19.5 kg

DRUGS (4)
  1. CEREZYME [Suspect]
     Indication: GAUCHER^S DISEASE
     Dosage: UNK DOSE:1200 UNIT(S)
     Route: 042
     Dates: start: 20130816
  2. METHYLPREDNISOLONE [Concomitant]
     Indication: BONE PAIN
     Dates: start: 20130819
  3. METHYLPREDNISOLONE [Concomitant]
     Indication: BONE PAIN
     Dates: start: 20130904
  4. TYLENOL WITH CODEINE [Concomitant]

REACTIONS (4)
  - Bone pain [Recovered/Resolved]
  - Bone pain [Recovered/Resolved]
  - Pyrexia [Recovered/Resolved]
  - Bone disorder [Recovered/Resolved]
